FAERS Safety Report 12988322 (Version 1)
Quarter: 2016Q4

REPORT INFORMATION
  Report Type: Spontaneous
  Country: NZ (occurrence: NZ)
  Receive Date: 20161130
  Receipt Date: 20161130
  Transmission Date: 20170207
  Serious: Yes (Hospitalization)
  Sender: FDA-Public Use
  Company Number: NZ-ELI_LILLY_AND_COMPANY-NZ201611007748

PATIENT
  Age: 18 Year
  Sex: Female

DRUGS (6)
  1. CANNABIDIOL [Concomitant]
     Active Substance: CANNABIDIOL
     Indication: PRODUCT USED FOR UNKNOWN INDICATION
     Dosage: UNK, UNKNOWN
     Route: 065
     Dates: end: 20160605
  2. NICOTINE. [Suspect]
     Active Substance: NICOTINE
     Indication: NICOTINE DEPENDENCE
     Dosage: 21 MG, QD
     Route: 062
     Dates: start: 20160605, end: 20160622
  3. 8-TETRAHYDROCANNABINOL [Concomitant]
     Active Substance: .DELTA.8-TETRAHYDROCANNABINOL
     Indication: PRODUCT USED FOR UNKNOWN INDICATION
     Dosage: UNK, UNKNOWN
     Route: 065
     Dates: end: 20160605
  4. ZOPICLONE [Suspect]
     Active Substance: ZOPICLONE
     Indication: HYPERSOMNIA
     Dosage: 7.5 MG, PRN
     Route: 048
     Dates: start: 20160605, end: 20160625
  5. OLANZAPINE. [Suspect]
     Active Substance: OLANZAPINE
     Indication: PSYCHOTIC DISORDER
     Dosage: 20 MG, QD
     Route: 048
     Dates: start: 20160605, end: 20160620
  6. LORAZEPAM. [Suspect]
     Active Substance: LORAZEPAM
     Indication: AGITATION
     Dosage: 2 MG, PRN
     Route: 065
     Dates: start: 20160605, end: 20160629

REACTIONS (5)
  - Pyrexia [Recovered/Resolved with Sequelae]
  - Syncope [Recovered/Resolved with Sequelae]
  - Pleuritic pain [Recovered/Resolved with Sequelae]
  - Arthralgia [Recovered/Resolved with Sequelae]
  - Rash pruritic [Recovered/Resolved with Sequelae]
